FAERS Safety Report 21673173 (Version 1)
Quarter: 2022Q4

REPORT INFORMATION
  Report Type: Report from Study
  Country: NL (occurrence: NL)
  Receive Date: 20221202
  Receipt Date: 20221202
  Transmission Date: 20230112
  Serious: Yes (Hospitalization, Other)
  Sender: FDA-Public Use
  Company Number: NL-ABBVIE-4219015

PATIENT
  Sex: Male

DRUGS (9)
  1. CARBIDOPA\LEVODOPA [Suspect]
     Active Substance: CARBIDOPA\LEVODOPA
     Indication: Parkinson^s disease
     Dosage: MD: 10.5ML, CD: 4.5ML/H, ED: 2.0ML
     Route: 050
  2. CARBIDOPA\LEVODOPA [Suspect]
     Active Substance: CARBIDOPA\LEVODOPA
     Route: 050
  3. CARBIDOPA\LEVODOPA [Suspect]
     Active Substance: CARBIDOPA\LEVODOPA
     Dosage: MD: 10.5ML, CD: 4.8ML/H, ED: 2.0ML
     Route: 050
  4. POLYETHYLENE GLYCOLS [Concomitant]
     Active Substance: POLYETHYLENE GLYCOLS
     Indication: Parkinson^s disease
  5. ACETAMINOPHEN [Concomitant]
     Active Substance: ACETAMINOPHEN
     Indication: Product used for unknown indication
     Route: 048
  6. TAMSULOSIN [Concomitant]
     Active Substance: TAMSULOSIN
     Indication: Prostatic disorder
     Route: 048
  7. BENSERAZIDE HYDROCHLORIDE\LEVODOPA [Concomitant]
     Active Substance: BENSERAZIDE HYDROCHLORIDE\LEVODOPA
     Indication: Parkinson^s disease
     Route: 048
     Dates: start: 20210311
  8. SODIUM CITRATE\SODIUM LAURYL SULFOACETATE\SORBITOL [Concomitant]
     Active Substance: SODIUM CITRATE\SODIUM LAURYL SULFOACETATE\SORBITOL
     Indication: Parkinson^s disease
     Route: 054
  9. CLOZAPINE [Concomitant]
     Active Substance: CLOZAPINE
     Indication: Depression
     Dates: start: 20210311

REACTIONS (1)
  - Ileus [Not Recovered/Not Resolved]
